FAERS Safety Report 6694898-4 (Version None)
Quarter: 2010Q2

REPORT INFORMATION
  Report Type: 
  Country: None (occurrence: None)
  Receive Date: 20100420
  Receipt Date: 20100407
  Transmission Date: 20101027
  Serious: Yes (Hospitalization)
  Sender: FDA-Public Use
  Company Number: 2010SCPR000514

PATIENT
  Age: 59 Year
  Sex: Female
  Weight: 63 kg

DRUGS (4)
  1. IBUPROFEN [Suspect]
     Indication: PAIN
     Dosage: 600 MG, TID, ORAL
     Route: 048
     Dates: start: 20100107, end: 20100110
  2. NALOXONE HYDROCHLORIDE W/TILIDINE HYDROCHLORIDE [Suspect]
     Indication: PAIN
     Dosage: 2 DF, ORAL
     Route: 048
     Dates: start: 20100107, end: 20100110
  3. BISOPROLOL FUMARATE [Concomitant]
  4. TELMISARTAN AND HYDROCHLOROTHIAZIDE [Concomitant]

REACTIONS (3)
  - ABDOMINAL PAIN UPPER [None]
  - NAUSEA [None]
  - VERTIGO [None]
